FAERS Safety Report 9536424 (Version 1)
Quarter: 2013Q1

REPORT INFORMATION
  Report Type: Spontaneous
  Country: US (occurrence: None)
  Receive Date: 20130326
  Receipt Date: 20130326
  Transmission Date: 20140127
  Serious: Yes (Other)
  Sender: FDA-Public Use
  Company Number: US-SEPTODONT-201200863

PATIENT
  Sex: Female

DRUGS (1)
  1. LIDOCAINE HYDROCHLORIDE W/EPINEPHRINE [Suspect]
     Indication: LOCAL ANAESTHESIA
     Dates: start: 201212, end: 201212

REACTIONS (3)
  - Tremor [None]
  - Abdominal discomfort [None]
  - Nausea [None]
